FAERS Safety Report 20171266 (Version 2)
Quarter: 2022Q1

REPORT INFORMATION
  Report Type: Spontaneous
  Country: US (occurrence: US)
  Receive Date: 20211210
  Receipt Date: 20220112
  Transmission Date: 20220423
  Serious: Yes (Death, Hospitalization, Disabling, Other)
  Sender: FDA-Public Use
  Company Number: US-009507513-2102USA001797

PATIENT
  Age: 68 Year
  Sex: Female
  Weight: 58.05 kg

DRUGS (8)
  1. SINEMET [Suspect]
     Active Substance: CARBIDOPA\LEVODOPA
     Indication: Periodic limb movement disorder
     Dosage: UNK
     Route: 048
     Dates: start: 2014
  2. SINEMET [Suspect]
     Active Substance: CARBIDOPA\LEVODOPA
     Dosage: UNK
     Route: 048
     Dates: start: 201703, end: 201704
  3. SINEMET [Suspect]
     Active Substance: CARBIDOPA\LEVODOPA
     Dosage: UNK
     Route: 048
     Dates: start: 201509, end: 201712
  4. SINEMET [Suspect]
     Active Substance: CARBIDOPA\LEVODOPA
     Dosage: 25-100MG , TAKE 2TS PO QID
     Route: 048
  5. ZOSTAVAX [Suspect]
     Active Substance: VARICELLA-ZOSTER VIRUS STRAIN OKA/MERCK LIVE ANTIGEN
     Indication: Routine health maintenance
     Dosage: UNK
     Route: 030
     Dates: start: 20140516
  6. ZOSTAVAX [Suspect]
     Active Substance: VARICELLA-ZOSTER VIRUS STRAIN OKA/MERCK LIVE ANTIGEN
     Indication: Prophylaxis
  7. ETODOLAC [Suspect]
     Active Substance: ETODOLAC
     Indication: Pain in extremity
     Dosage: UNK
  8. TEMAZEPAM [Concomitant]
     Active Substance: TEMAZEPAM
     Indication: Sleep disorder
     Dosage: 30 MG, UNK

REACTIONS (47)
  - Amyotrophic lateral sclerosis [Fatal]
  - Cardio-respiratory arrest [Fatal]
  - Parkinson^s disease [Unknown]
  - Sepsis [Fatal]
  - Pyelocaliectasis [Fatal]
  - Acute respiratory failure [Fatal]
  - Chronic respiratory failure [Fatal]
  - CSF protein increased [Fatal]
  - Seizure [Unknown]
  - Chills [Unknown]
  - Eye irritation [Unknown]
  - Lacrimation increased [Unknown]
  - Intervertebral disc degeneration [Unknown]
  - Skin burning sensation [Unknown]
  - Kyphosis [Unknown]
  - Osteoporosis [Unknown]
  - Lumbar spinal stenosis [Unknown]
  - Peripheral sensory neuropathy [Unknown]
  - Intervertebral disc protrusion [Unknown]
  - Pain in extremity [Recovered/Resolved]
  - Therapeutic product effect incomplete [Unknown]
  - Acute sinusitis [Unknown]
  - Musculoskeletal pain [Unknown]
  - Oral discomfort [Unknown]
  - Ocular discomfort [Unknown]
  - Bone pain [Unknown]
  - Lymphadenopathy [Unknown]
  - Spinal retrolisthesis [Unknown]
  - Blood creatine phosphokinase increased [Unknown]
  - Blood pyruvic acid increased [Unknown]
  - Sciatica [Unknown]
  - Arthritis [Unknown]
  - Head discomfort [Recovered/Resolved]
  - Hypertension [Unknown]
  - Diaphragmatic disorder [Unknown]
  - Oedema peripheral [Unknown]
  - Rhinorrhoea [Unknown]
  - Neuralgia [Unknown]
  - Spondylolisthesis [Unknown]
  - Tongue discomfort [Unknown]
  - Facial pain [Unknown]
  - Head discomfort [Unknown]
  - Drug ineffective [Unknown]
  - Depression [Recovered/Resolved]
  - Poor quality sleep [Unknown]
  - Insomnia [Unknown]
  - Anxiety [Unknown]

NARRATIVE: CASE EVENT DATE: 20140101
